FAERS Safety Report 13115184 (Version 14)
Quarter: 2017Q4

REPORT INFORMATION
  Report Type: Spontaneous
  Country: US (occurrence: US)
  Receive Date: 20170113
  Receipt Date: 20171127
  Transmission Date: 20180320
  Serious: Yes (Death, Hospitalization, Other)
  Sender: FDA-Public Use
  Company Number: US-ACTELION-A-NJ2017-148326

PATIENT
  Age: 63 Year
  Sex: Female
  Weight: 87.53 kg

DRUGS (8)
  1. SILDENAFIL. [Concomitant]
     Active Substance: SILDENAFIL
  2. VELETRI [Suspect]
     Active Substance: EPOPROSTENOL
     Indication: PULMONARY ARTERIAL HYPERTENSION
     Dosage: 41 NG/KG, PER MIN
     Route: 042
     Dates: start: 20100726
  3. COUMADIN [Concomitant]
     Active Substance: WARFARIN SODIUM
  4. IRON [Concomitant]
     Active Substance: IRON
  5. VELETRI [Suspect]
     Active Substance: EPOPROSTENOL
     Dosage: 37.6 NG/KG, PER MIN
     Route: 042
  6. TRACLEER [Suspect]
     Active Substance: BOSENTAN
     Indication: PULMONARY ARTERIAL HYPERTENSION
     Dosage: 125 MG, BID
     Route: 048
     Dates: start: 20020222
  7. VELETRI [Suspect]
     Active Substance: EPOPROSTENOL
     Dosage: 37 NG/KG, PER MIN
     Route: 042
  8. DILTIAZEM. [Concomitant]
     Active Substance: DILTIAZEM

REACTIONS (15)
  - Dehydration [Unknown]
  - Pneumonia [Unknown]
  - Fluid overload [Unknown]
  - Tachycardia [Unknown]
  - Fatigue [Unknown]
  - Dyspnoea [Unknown]
  - Palpitations [Unknown]
  - Atrial fibrillation [Unknown]
  - Mineral supplementation [Recovered/Resolved]
  - Cough [Unknown]
  - Pulmonary arterial hypertension [Fatal]
  - Chest discomfort [Unknown]
  - Rectal haemorrhage [Unknown]
  - Fluid retention [Unknown]
  - Cardiac disorder [Unknown]

NARRATIVE: CASE EVENT DATE: 20170601
